FAERS Safety Report 6956576-3 (Version None)
Quarter: 2010Q3

REPORT INFORMATION
  Report Type: 
  Country: None (occurrence: None)
  Receive Date: 20100830
  Receipt Date: 20100818
  Transmission Date: 20110219
  Serious: Yes (Other)
  Sender: FDA-Public Use
  Company Number: US-PFIZER INC-2010104871

PATIENT
  Sex: Female

DRUGS (3)
  1. GABAPENTIN [Suspect]
     Indication: FIBROMYALGIA
     Dosage: 300 MG, 3X/DAY
     Route: 048
     Dates: start: 20100201
  2. TRAZODONE [Concomitant]
     Dosage: 100 MG, DAILY
  3. HYDROCODONE [Concomitant]
     Indication: FIBROMYALGIA
     Dosage: UNK, DAILY

REACTIONS (2)
  - BLADDER PAIN [None]
  - POLYURIA [None]
